FAERS Safety Report 7413185-X (Version None)
Quarter: 2011Q2

REPORT INFORMATION
  Report Type: 
  Country: None (occurrence: None)
  Receive Date: 20110413
  Receipt Date: 20110408
  Transmission Date: 20111010
  Serious: Yes (Other)
  Sender: FDA-Public Use
  Company Number: US-PFIZER INC-2011078362

PATIENT
  Age: 60 Year
  Sex: Female

DRUGS (1)
  1. LYRICA [Suspect]
     Indication: NEUROPATHY PERIPHERAL
     Dosage: 25 MG, 3X/DAY
     Route: 048
     Dates: start: 20110301, end: 20110301

REACTIONS (13)
  - PULSE ABNORMAL [None]
  - HEARING IMPAIRED [None]
  - VERTIGO [None]
  - LETHARGY [None]
  - SPEECH DISORDER [None]
  - FEELING ABNORMAL [None]
  - DIPLOPIA [None]
  - VISION BLURRED [None]
  - DYSPNOEA [None]
  - NAUSEA [None]
  - HYPOAESTHESIA [None]
  - EMOTIONAL DISORDER [None]
  - PHOTOSENSITIVITY REACTION [None]
